FAERS Safety Report 10144546 (Version 1)
Quarter: 2014Q2

REPORT INFORMATION
  Report Type: Spontaneous
  Country: US (occurrence: US)
  Receive Date: 20140430
  Receipt Date: 20140430
  Transmission Date: 20141212
  Serious: Yes (Hospitalization)
  Sender: FDA-Public Use
  Company Number: US-SA-2014SA034704

PATIENT
  Age: 43 Year
  Sex: Male

DRUGS (1)
  1. LOVENOX [Suspect]
     Indication: PROPHYLAXIS
     Dosage: TAKEN TO : FEB 2014
     Route: 065
     Dates: start: 20140204

REACTIONS (1)
  - Haemorrhage [Recovered/Resolved]
